FAERS Safety Report 9262365 (Version 1)
Quarter: 2013Q2

REPORT INFORMATION
  Report Type: Spontaneous
  Country: US (occurrence: US)
  Receive Date: 20130430
  Receipt Date: 20130430
  Transmission Date: 20140414
  Serious: No
  Sender: FDA-Public Use
  Company Number: US-009507513-1304USA015708

PATIENT
  Age: 66 Year
  Sex: Female

DRUGS (15)
  1. VICTRELIS [Suspect]
     Indication: HEPATITIS C
     Dosage: 800 MG, TID
     Route: 048
     Dates: start: 20130405, end: 201304
  2. PEGASYS [Suspect]
     Dosage: UNK
     Dates: start: 20130301
  3. RIBAPAK [Suspect]
     Dosage: UNK
     Dates: start: 20130301
  4. COREG [Concomitant]
  5. LASIX (FUROSEMIDE SODIUM) [Concomitant]
  6. DIOVAN [Concomitant]
  7. K-DUR [Concomitant]
  8. METFORMIN HYDROCHLORIDE [Concomitant]
  9. ASPIRIN [Concomitant]
     Dosage: 81 MG, QD
  10. ADVAIR [Concomitant]
  11. CRESTOR [Concomitant]
  12. CHLORPROPAMIDE [Concomitant]
  13. PRILOSEC [Concomitant]
  14. VITAMINS (UNSPECIFIED) [Concomitant]
  15. PROVENTIL [Concomitant]

REACTIONS (5)
  - Mood swings [Unknown]
  - Depression [Unknown]
  - Dysgeusia [Unknown]
  - Decreased appetite [Unknown]
  - Anaemia [Unknown]
